FAERS Safety Report 12402506 (Version 3)
Quarter: 2017Q2

REPORT INFORMATION
  Report Type: Spontaneous
  Country: US (occurrence: US)
  Receive Date: 20160525
  Receipt Date: 20170427
  Transmission Date: 20170830
  Serious: Yes (Other)
  Sender: FDA-Public Use
  Company Number: US-PFIZER INC-2016266375

PATIENT
  Age: 29 Year
  Sex: Male

DRUGS (3)
  1. VITAMIN B12 [Concomitant]
     Active Substance: CYANOCOBALAMIN
     Dosage: 1000 UG, 1CC TWICE WEEKLY (MONDAY + FRIDAY)
     Dates: start: 2016
  2. LIDOCAINE. [Concomitant]
     Active Substance: LIDOCAINE
     Dosage: 4CC TWICE WEEKLY (MONDAY AND FRIDAY)
     Dates: start: 2014
  3. BUPIVACAINE HCL [Suspect]
     Active Substance: BUPIVACAINE HYDROCHLORIDE
     Indication: NERVE BLOCK
     Dosage: 3CC TWICE WEEKLY (MONDAY AND FRIDAY)
     Route: 051

REACTIONS (3)
  - Incorrect dose administered [Recovered/Resolved]
  - Burning sensation [Recovered/Resolved]
  - Delayed recovery from anaesthesia [Unknown]

NARRATIVE: CASE EVENT DATE: 20160516
